FAERS Safety Report 6937237-3 (Version None)
Quarter: 2010Q3

REPORT INFORMATION
  Report Type: 
  Country: None (occurrence: None)
  Receive Date: 20100823
  Receipt Date: 20100813
  Transmission Date: 20110219
  Serious: Yes (Death, Hospitalization)
  Sender: FDA-Public Use
  Company Number: A0876890A

PATIENT
  Sex: Female
  Weight: 73 kg

DRUGS (5)
  1. SERETIDE [Suspect]
     Indication: BRONCHITIS
     Route: 055
     Dates: start: 20090201, end: 20100726
  2. NIAR [Concomitant]
     Dosage: 1TAB AT NIGHT
  3. PHENYTOIN [Concomitant]
     Dosage: 1TAB TWICE PER DAY
     Dates: start: 20020101, end: 20100726
  4. ASPIRIN [Concomitant]
     Dosage: 2TAB PER DAY
     Dates: start: 20020101, end: 20100726
  5. ARTROLIVE [Concomitant]
     Dosage: 1TAB THREE TIMES PER DAY
     Dates: start: 20090801, end: 20100726

REACTIONS (2)
  - PNEUMONIA [None]
  - RESPIRATORY FAILURE [None]
